FAERS Safety Report 7951255-8 (Version None)
Quarter: 2011Q4

REPORT INFORMATION
  Report Type: 
  Country: None (occurrence: None)
  Receive Date: 20111201
  Receipt Date: 20111118
  Transmission Date: 20120403
  Serious: No
  Sender: FDA-Public Use
  Company Number: US-BIOGENIDEC-2011BI045029

PATIENT
  Sex: Female

DRUGS (2)
  1. AVONEX [Suspect]
     Indication: MULTIPLE SCLEROSIS
     Route: 030
     Dates: start: 20010801
  2. AVONEX [Suspect]
     Route: 030

REACTIONS (3)
  - CONTUSION [None]
  - MOOD SWINGS [None]
  - INJECTION SITE PAIN [None]
